FAERS Safety Report 7769422-5 (Version None)
Quarter: 2011Q3

REPORT INFORMATION
  Report Type: 
  Country: None (occurrence: None)
  Receive Date: 20110922
  Receipt Date: 20100902
  Transmission Date: 20111222
  Serious: No
  Sender: FDA-Public Use
  Company Number: US-ASTRAZENECA-2010SE41458

PATIENT
  Sex: Female
  Weight: 117.9 kg

DRUGS (2)
  1. SEROQUEL XR [Suspect]
     Indication: BIPOLAR DISORDER
     Dosage: DAILY
     Route: 048
  2. SEROQUEL XR [Suspect]
     Route: 048

REACTIONS (5)
  - SLEEP DISORDER [None]
  - PRURITUS [None]
  - SOMNOLENCE [None]
  - DRUG DOSE OMISSION [None]
  - DIARRHOEA [None]
